FAERS Safety Report 6036239-1 (Version None)
Quarter: 2009Q1

REPORT INFORMATION
  Report Type: 
  Country: None (occurrence: None)
  Receive Date: 20090113
  Receipt Date: 20090108
  Transmission Date: 20090719
  Serious: Yes (Hospitalization)
  Sender: FDA-Public Use
  Company Number: AU-B.I. PHARMACEUTICALS,INC./RIDGEFIELD-2009-DE-00120GD

PATIENT
  Sex: Male

DRUGS (2)
  1. CLONIDINE [Suspect]
     Indication: TOURETTE'S DISORDER
  2. CLOZAPINE [Concomitant]
     Indication: PSYCHOTIC DISORDER
     Dosage: STARTING DOSE 150 MG, GRADUALLY INCREASED AND STABILIZED AT 600 MG
     Dates: start: 19950201, end: 19970101

REACTIONS (1)
  - DRUG INEFFECTIVE [None]
